FAERS Safety Report 8719073 (Version 2)
Quarter: 2013Q2

REPORT INFORMATION
  Report Type: Spontaneous
  Country: PT (occurrence: PT)
  Receive Date: 20120813
  Receipt Date: 20130426
  Transmission Date: 20140414
  Serious: Yes (Death, Hospitalization, Other)
  Sender: FDA-Public Use
  Company Number: PT-AMGEN-PRTSP2012050024

PATIENT
  Age: 65 Year
  Sex: Male
  Weight: 45 kg

DRUGS (4)
  1. ENBREL [Suspect]
     Indication: ANKYLOSING SPONDYLITIS
     Dosage: 50 MG, WEEKLY
     Route: 058
     Dates: start: 20041004, end: 20120515
  2. MIFLONIDE [Interacting]
     Indication: BRONCHOPULMONARY DISEASE
     Dosage: 400 UG, 2X/DAY
     Route: 055
     Dates: start: 2005
  3. SPIRIVA [Concomitant]
     Indication: BRONCHOPULMONARY DISEASE
     Dosage: 0.0225 MG, QD
     Route: 055
     Dates: start: 2010
  4. FORMOTEROL [Concomitant]
     Indication: BRONCHOPULMONARY DISEASE
     Dosage: 1 DF, 2X/DAY
     Route: 055
     Dates: start: 2010

REACTIONS (3)
  - Drug interaction [Unknown]
  - Respiratory failure [Fatal]
  - Bronchopulmonary aspergillosis [Unknown]
